FAERS Safety Report 8986670 (Version 1)
Quarter: 2012Q4

REPORT INFORMATION
  Report Type: Spontaneous
  Country: DE (occurrence: None)
  Receive Date: 20121109
  Receipt Date: 20121109
  Transmission Date: 20130627
  Serious: Yes (Hospitalization)
  Sender: FDA-Public Use
  Company Number: 2012S1000753

PATIENT
  Age: 44 Year
  Sex: Male

DRUGS (6)
  1. CUBICIN [Suspect]
     Indication: SEPSIS
     Dates: start: 20120815, end: 20120825
  2. MERONEM [Concomitant]
  3. COMBACTAM [Concomitant]
  4. CIPROBAY [Concomitant]
  5. UNACID [Concomitant]
  6. CLONT [Concomitant]

REACTIONS (1)
  - Pathogen resistance [None]
